FAERS Safety Report 6828016-6 (Version None)
Quarter: 2010Q3

REPORT INFORMATION
  Report Type: 
  Country: None (occurrence: None)
  Receive Date: 20100709
  Receipt Date: 20100701
  Transmission Date: 20110219
  Serious: Yes (Hospitalization)
  Sender: FDA-Public Use
  Company Number: A0869333A

PATIENT
  Age: 71 Year
  Sex: Male

DRUGS (1)
  1. AVANDIA [Suspect]
     Dosage: 2MG TWICE PER DAY
     Dates: start: 20050101, end: 20070101

REACTIONS (3)
  - ANXIETY [None]
  - DEPRESSION [None]
  - MYOCARDIAL INFARCTION [None]
